FAERS Safety Report 23810059 (Version 2)
Quarter: 2024Q2

REPORT INFORMATION
  Report Type: Spontaneous
  Country: JP (occurrence: JP)
  Receive Date: 20240502
  Receipt Date: 20240528
  Transmission Date: 20240716
  Serious: Yes (Hospitalization)
  Sender: FDA-Public Use
  Company Number: JP-MTPC-MTPC2024-0009360

PATIENT
  Age: 73 Year
  Sex: Male

DRUGS (3)
  1. CANAGLIFLOZIN [Suspect]
     Active Substance: CANAGLIFLOZIN
     Indication: Type 2 diabetes mellitus
     Dosage: 100 MILLIGRAM, QD
     Route: 048
  2. URAPIDIL [Concomitant]
     Active Substance: URAPIDIL
     Dosage: 30 MILLIGRAM, QD
     Route: 048
  3. LUBIPROSTONE [Concomitant]
     Active Substance: LUBIPROSTONE
     Dosage: 24 MICROGRAM, QD
     Route: 048

REACTIONS (13)
  - Pyrexia [Unknown]
  - Bacterial infection [Unknown]
  - Hyperglycaemic hyperosmolar nonketotic syndrome [Unknown]
  - Pneumonia aspiration [Unknown]
  - Dysphagia [Unknown]
  - Systemic candida [Unknown]
  - Pneumonia [Unknown]
  - Phlebitis [Unknown]
  - Injection site erythema [Unknown]
  - Injection site abscess [Unknown]
  - Pneumonia [Unknown]
  - Pneumonia [Unknown]
  - Pleural effusion [Unknown]
